FAERS Safety Report 18902743 (Version 1)
Quarter: 2021Q1

REPORT INFORMATION
  Report Type: Spontaneous
  Country: US (occurrence: US)
  Receive Date: 20210217
  Receipt Date: 20210217
  Transmission Date: 20210420
  Serious: No
  Sender: FDA-Public Use
  Company Number: US-PFIZER INC-2021138481

PATIENT
  Age: 23 Year
  Sex: Female

DRUGS (1)
  1. XELJANZ [Suspect]
     Active Substance: TOFACITINIB CITRATE
     Indication: ALOPECIA
     Dosage: 10 MG
     Route: 048

REACTIONS (7)
  - Personality change [Unknown]
  - Feeling abnormal [Unknown]
  - Off label use [Unknown]
  - Abnormal behaviour [Unknown]
  - Therapeutic response unexpected [Unknown]
  - Drug effective for unapproved indication [Unknown]
  - Mania [Unknown]
